FAERS Safety Report 7044495-6 (Version None)
Quarter: 2010Q4

REPORT INFORMATION
  Report Type: 
  Country: None (occurrence: None)
  Receive Date: 20101013
  Receipt Date: 20101013
  Transmission Date: 20110411
  Serious: Yes (Disabling)
  Sender: FDA-Public Use
  Company Number: None

PATIENT
  Sex: Female
  Weight: 88.4514 kg

DRUGS (1)
  1. ACTONEL [Suspect]
     Indication: OSTEOPOROSIS
     Dosage: ONCE WEEKLY PO
     Route: 048
     Dates: start: 20081201, end: 20090601

REACTIONS (4)
  - BONE DENSITY DECREASED [None]
  - CHRONIC SINUSITIS [None]
  - JAW DISORDER [None]
  - MEDICAL DEVICE REMOVAL [None]
